FAERS Safety Report 20748163 (Version 2)
Quarter: 2022Q4

REPORT INFORMATION
  Report Type: Report from Study
  Country: HU (occurrence: HU)
  Receive Date: 20220426
  Receipt Date: 20221020
  Transmission Date: 20230113
  Serious: Yes (Hospitalization, Other)
  Sender: FDA-Public Use
  Company Number: HU-BRISTOL-MYERS SQUIBB COMPANY-2022-027407

PATIENT
  Age: 50 Year
  Sex: Male
  Weight: 74.8 kg

DRUGS (3)
  1. IPILIMUMAB [Suspect]
     Active Substance: IPILIMUMAB
     Indication: Renal cell carcinoma
     Dosage: PRIOR TO THE ONSET OF THE EVENTS, THE PATIENT RECEIVED HIS MOST RECENT DOSE OF IPILIMUMAB ON 11-SEP-
     Route: 042
     Dates: start: 20200824, end: 20201028
  2. CABOZANTINIB [Suspect]
     Active Substance: CABOZANTINIB
     Indication: Renal cell carcinoma
     Dosage: PRIOR TO THE ONSET OF THE EVENTS, THE PATIENT RECEIVED HIS MOST RECENT DOSE 28-SEP-2020?ON 29-SEP-20
     Route: 048
     Dates: start: 20200824, end: 20201028
  3. NUTRIDRINK MAX [Concomitant]
     Indication: Product used for unknown indication
     Route: 065

REACTIONS (2)
  - Jejunal ulcer [Recovered/Resolved]
  - Immune-mediated hepatitis [Not Recovered/Not Resolved]

NARRATIVE: CASE EVENT DATE: 20200929
